FAERS Safety Report 5122918-7 (Version None)
Quarter: 2006Q4

REPORT INFORMATION
  Report Type: 
  Country: None (occurrence: None)
  Receive Date: 20061009
  Receipt Date: 20060622
  Transmission Date: 20070319
  Serious: Yes (Hospitalization, Other)
  Sender: FDA-Public Use
  Company Number: 2006UW13810

PATIENT
  Age: 63 Year
  Sex: Male
  Weight: 95 kg

DRUGS (2)
  1. CASODEX [Suspect]
     Indication: PROSTATE CANCER
     Route: 048
     Dates: start: 20041202, end: 20060101
  2. CASODEX [Suspect]
     Route: 048
     Dates: start: 20060618

REACTIONS (8)
  - ABDOMINAL PAIN [None]
  - ANKLE FRACTURE [None]
  - BALANCE DISORDER [None]
  - BLOOD PRESSURE INCREASED [None]
  - FALL [None]
  - GAIT DISTURBANCE [None]
  - PANIC DISORDER [None]
  - WEIGHT INCREASED [None]
